FAERS Safety Report 14523867 (Version 2)
Quarter: 2018Q1

REPORT INFORMATION
  Report Type: Spontaneous
  Country: JP (occurrence: JP)
  Receive Date: 20180213
  Receipt Date: 20180222
  Transmission Date: 20180509
  Serious: Yes (Hospitalization, Other)
  Sender: FDA-Public Use
  Company Number: JP-B.I. PHARMACEUTICALS,INC./RIDGEFIELD-2018-NB-000600

PATIENT
  Age: 71 Year
  Sex: Male

DRUGS (3)
  1. TRAZENTA [Suspect]
     Active Substance: LINAGLIPTIN
     Indication: DIABETES MELLITUS
     Route: 065
  2. TRAZENTA [Suspect]
     Active Substance: LINAGLIPTIN
     Indication: HYPERGLYCAEMIA
  3. MITIGLINIDE CALCIUM HYDRATE [Concomitant]
     Active Substance: MITIGLINIDE CALCIUM HYDRATE
     Indication: HYPERGLYCAEMIA
     Route: 065

REACTIONS (6)
  - Altered state of consciousness [Unknown]
  - Emphysematous cystitis [Unknown]
  - Myocardial infarction [Unknown]
  - Cardiac failure acute [Unknown]
  - Cachexia [Unknown]
  - Sepsis [Unknown]
